FAERS Safety Report 5735421-8 (Version None)
Quarter: 2008Q2

REPORT INFORMATION
  Report Type: 
  Country: None (occurrence: None)
  Receive Date: 20080512
  Receipt Date: 20080506
  Transmission Date: 20081010
  Serious: Yes (Other)
  Sender: FDA-Public Use
  Company Number: BR-ASTRAZENECA-2008UW09397

PATIENT
  Age: 57 Year
  Sex: Female
  Weight: 72 kg

DRUGS (1)
  1. XYLOPROCT [Suspect]
     Indication: HAEMORRHOIDS
     Dosage: TID
     Route: 054
     Dates: start: 20020101

REACTIONS (7)
  - ANAL FISSURE [None]
  - DEPRESSION [None]
  - DIABETES MELLITUS [None]
  - HAEMORRHOIDS [None]
  - MUCOSAL INFLAMMATION [None]
  - PROCTALGIA [None]
  - WEIGHT DECREASED [None]
